FAERS Safety Report 6522746-1 (Version None)
Quarter: 2009Q4

REPORT INFORMATION
  Report Type: 
  Country: None (occurrence: None)
  Receive Date: 20091230
  Receipt Date: 20091221
  Transmission Date: 20100525
  Serious: Yes (Disabling)
  Sender: FDA-Public Use
  Company Number: BR-ABBOTT-09P-020-0616044-00

PATIENT
  Sex: Female
  Weight: 59 kg

DRUGS (14)
  1. HUMIRA [Suspect]
     Indication: RHEUMATOID ARTHRITIS
     Route: 058
     Dates: start: 20071001
  2. HUMIRA [Suspect]
  3. HUMIRA [Suspect]
     Dates: start: 20091215
  4. OMEPRAZOLE [Concomitant]
     Indication: GASTRITIS
     Route: 048
  5. METHOTREXATE [Concomitant]
     Indication: RHEUMATOID ARTHRITIS
     Route: 048
  6. CLORANA [Concomitant]
     Indication: BLOOD PRESSURE
     Route: 048
  7. MAGISTRAL FORM [Concomitant]
     Indication: RHEUMATOID ARTHRITIS
     Route: 048
  8. MAGISTRAL FORM [Concomitant]
     Indication: PAIN
  9. EVISTA [Concomitant]
     Indication: OSTEOPOROSIS
     Route: 048
  10. GABAPENTIN [Concomitant]
     Indication: PAIN
     Route: 048
     Dates: start: 20091219
  11. GABAPENTIN [Concomitant]
     Indication: RHEUMATOID ARTHRITIS
  12. DEXALGEN [Concomitant]
     Indication: PAIN
     Route: 030
  13. BETAMETHASONE [Concomitant]
     Indication: PAIN
     Route: 030
  14. DICLOFENAC / PYRIDOXINE/ CYANOCOBALAMIN (ALGINAC) [Concomitant]
     Indication: PAIN
     Route: 030

REACTIONS (13)
  - ALOPECIA [None]
  - FALL [None]
  - GAIT DISTURBANCE [None]
  - GASTROINTESTINAL INFECTION [None]
  - HYPOTENSION [None]
  - OSTEOPOROSIS [None]
  - PAIN [None]
  - PAIN IN EXTREMITY [None]
  - PYREXIA [None]
  - RASH MACULAR [None]
  - SKIN FRAGILITY [None]
  - SKIN PLAQUE [None]
  - WEIGHT DECREASED [None]
